FAERS Safety Report 13557886 (Version 1)
Quarter: 2017Q2

REPORT INFORMATION
  Report Type: Spontaneous
  Country: US (occurrence: US)
  Receive Date: 20170517
  Receipt Date: 20170517
  Transmission Date: 20170830
  Serious: No
  Sender: FDA-Public Use
  Company Number: None

PATIENT
  Age: 7 Year
  Sex: Male

DRUGS (1)
  1. NORDITROPIN [Suspect]
     Active Substance: SOMATROPIN
     Route: 058
     Dates: start: 20160707

REACTIONS (3)
  - Educational problem [None]
  - Disturbance in attention [None]
  - Feeling abnormal [None]

NARRATIVE: CASE EVENT DATE: 20160801
